FAERS Safety Report 8060857-2 (Version None)
Quarter: 2012Q1

REPORT INFORMATION
  Report Type: 
  Country: None (occurrence: None)
  Receive Date: 20120120
  Receipt Date: 20110217
  Transmission Date: 20120608
  Serious: No
  Sender: FDA-Public Use
  Company Number: US-ALLERGAN-1102395US

PATIENT
  Age: 52 Year
  Sex: Female

DRUGS (2)
  1. HYPOTEARS                          /00543401/ [Concomitant]
     Indication: DRY EYE
     Dosage: UNK
  2. RESTASIS [Suspect]
     Indication: PRODUCT USED FOR UNKNOWN INDICATION
     Dosage: 1 GTT, BID
     Route: 047
     Dates: start: 20101201, end: 20110216

REACTIONS (3)
  - GINGIVAL HYPERPLASIA [None]
  - GINGIVAL ULCERATION [None]
  - GINGIVAL BLEEDING [None]
